FAERS Safety Report 19263091 (Version 1)
Quarter: 2021Q2

REPORT INFORMATION
  Report Type: Spontaneous
  Country: US (occurrence: US)
  Receive Date: 20210517
  Receipt Date: 20210517
  Transmission Date: 20210717
  Serious: Yes (Other)
  Sender: FDA-Public Use
  Company Number: US-SPECGX-T202002350

PATIENT
  Sex: Male

DRUGS (2)
  1. METHADOSE [Suspect]
     Active Substance: METHADONE HYDROCHLORIDE
     Indication: DRUG DEPENDENCE
     Dosage: UNK
     Route: 048
  2. METHADONE [Suspect]
     Active Substance: METHADONE HYDROCHLORIDE
     Indication: DRUG DEPENDENCE
     Dosage: UNK
     Route: 048

REACTIONS (5)
  - Drug ineffective [Unknown]
  - Drug diversion [Unknown]
  - Withdrawal syndrome [Unknown]
  - Therapeutic response shortened [Unknown]
  - Euphoric mood [Unknown]
